FAERS Safety Report 4984162-3 (Version None)
Quarter: 2006Q2

REPORT INFORMATION
  Report Type: 
  Country: None (occurrence: None)
  Receive Date: 20060425
  Receipt Date: 20060425
  Transmission Date: 20061013
  Serious: Yes (Other)
  Sender: FDA-Public Use
  Company Number: None

PATIENT
  Sex: Female
  Weight: 88.4514 kg

DRUGS (12)
  1. ASACOL [Suspect]
     Indication: COLITIS ULCERATIVE
     Dosage: 400MG  2 PO TID  PO
     Route: 048
     Dates: start: 20040518
  2. LORATADINE [Concomitant]
  3. LEVOTHROID [Concomitant]
  4. LAMICTAL [Concomitant]
  5. DOXEPIN [Concomitant]
  6. CALCIUM GLUCONATE [Concomitant]
  7. PRENATAL VITAMINS (PRENAVITE) [Concomitant]
  8. NASACORT AQ [Concomitant]
  9. VICODIN [Concomitant]
  10. ATIVAN [Concomitant]
  11. MAGNESIUM OXIDE [Concomitant]
  12. METAMUCIL [Concomitant]

REACTIONS (2)
  - COLITIS ULCERATIVE [None]
  - PHARMACEUTICAL PRODUCT COMPLAINT [None]
